FAERS Safety Report 23082562 (Version 2)
Quarter: 2023Q4

REPORT INFORMATION
  Report Type: Spontaneous
  Country: US (occurrence: US)
  Receive Date: 20231019
  Receipt Date: 20231120
  Transmission Date: 20240109
  Serious: No
  Sender: FDA-Public Use
  Company Number: US-ALK-ABELLO A/S-2023AA003288

PATIENT

DRUGS (1)
  1. EGG WHITE [Suspect]
     Active Substance: EGG WHITE
     Indication: Skin test
     Dosage: UNK
     Dates: start: 20230817

REACTIONS (1)
  - False negative investigation result [Unknown]

NARRATIVE: CASE EVENT DATE: 20230817
